FAERS Safety Report 5342801-1 (Version None)
Quarter: 2007Q2

REPORT INFORMATION
  Report Type: 
  Country: None (occurrence: None)
  Receive Date: 20070601
  Receipt Date: 20070522
  Transmission Date: 20071010
  Serious: Yes (Other)
  Sender: FDA-Public Use
  Company Number: JP-PFIZER INC-2007042361

PATIENT
  Age: 50 Year
  Sex: Male

DRUGS (6)
  1. LIPITOR [Suspect]
     Route: 048
  2. ALLELOCK [Concomitant]
     Route: 048
  3. ATARAX [Concomitant]
     Route: 048
  4. PROGRAF [Concomitant]
     Route: 048
  5. GASTER [Concomitant]
     Route: 048
  6. BAKTAR [Concomitant]
     Route: 048

REACTIONS (1)
  - INTERSTITIAL LUNG DISEASE [None]
